FAERS Safety Report 4530596-0 (Version None)
Quarter: 2004Q4

REPORT INFORMATION
  Report Type: 
  Country: None (occurrence: None)
  Receive Date: 20041217
  Receipt Date: 20041217
  Transmission Date: 20050328
  Serious: Yes (Life-Threatening)
  Sender: FDA-Public Use
  Company Number: None

PATIENT
  Age: 13 Year
  Sex: Male

DRUGS (5)
  1. CISAPRIDE [Suspect]
     Indication: GASTROOESOPHAGEAL REFLUX DISEASE
     Dosage: 7 MG QID PO
     Route: 048
  2. CISAPRIDE [Suspect]
     Indication: INTESTINAL HYPOMOTILITY
     Dosage: 7 MG QID PO
     Route: 048
  3. CARNITINE [Concomitant]
  4. FLONASE [Concomitant]
  5. MULTIVITAMINS / VIT C [Concomitant]

REACTIONS (1)
  - CARDIAC FAILURE [None]
